FAERS Safety Report 24758910 (Version 1)
Quarter: 2024Q4

REPORT INFORMATION
  Report Type: Spontaneous
  Country: FR (occurrence: FR)
  Receive Date: 20241220
  Receipt Date: 20241220
  Transmission Date: 20250114
  Serious: Yes (Hospitalization)
  Sender: NOVARTIS
  Company Number: None

PATIENT
  Age: 56 Year
  Sex: Male
  Weight: 60 kg

DRUGS (16)
  1. NEORAL [Suspect]
     Active Substance: CYCLOSPORINE
     Indication: Prophylaxis against transplant rejection
     Dosage: 240 MG, QD
     Route: 048
     Dates: start: 20231024
  2. CERTICAN [Suspect]
     Active Substance: EVEROLIMUS
     Indication: Prophylaxis against transplant rejection
     Dosage: 0.2 MG, QD
     Route: 048
     Dates: start: 20240722, end: 20240823
  3. CERTICAN [Suspect]
     Active Substance: EVEROLIMUS
     Dosage: 0.4 MG, QD
     Route: 048
     Dates: start: 20240823, end: 20240923
  4. CERTICAN [Suspect]
     Active Substance: EVEROLIMUS
     Dosage: 0.9 MG, QD
     Route: 048
     Dates: start: 20240923, end: 20241025
  5. CERTICAN [Suspect]
     Active Substance: EVEROLIMUS
     Dosage: 1 MG, QD
     Route: 048
     Dates: start: 20241025, end: 20241120
  6. PREDNISONE [Suspect]
     Active Substance: PREDNISONE
     Indication: Prophylaxis against transplant rejection
     Dosage: 50 MG, QD
     Route: 048
     Dates: start: 20231031, end: 20231127
  7. PREDNISONE [Suspect]
     Active Substance: PREDNISONE
     Dosage: 20 MG, QD
     Route: 048
     Dates: start: 20231127, end: 20231221
  8. PREDNISONE [Suspect]
     Active Substance: PREDNISONE
     Dosage: 10 MG, QD
     Route: 048
     Dates: start: 20231221, end: 20240322
  9. PREDNISONE [Suspect]
     Active Substance: PREDNISONE
     Dosage: 9 MG, QD
     Route: 048
     Dates: start: 20240322, end: 20240722
  10. PREDNISONE [Suspect]
     Active Substance: PREDNISONE
     Dosage: 6 MG, QD
     Route: 048
     Dates: start: 20240722
  11. CELLCEPT [Suspect]
     Active Substance: MYCOPHENOLATE MOFETIL
     Indication: Prophylaxis against transplant rejection
     Dosage: 3000 MG, QD
     Route: 048
     Dates: start: 20231031, end: 20231221
  12. CELLCEPT [Suspect]
     Active Substance: MYCOPHENOLATE MOFETIL
     Dosage: 2500 MG, QD
     Route: 048
     Dates: start: 20231221, end: 20240722
  13. CELLCEPT [Suspect]
     Active Substance: MYCOPHENOLATE MOFETIL
     Dosage: 2000 MG, QD
     Route: 048
     Dates: start: 20240722
  14. VALGANCICLOVIR [Concomitant]
     Active Substance: VALGANCICLOVIR
     Indication: Opportunistic infection prophylaxis
     Dosage: 450 MG, QD
     Route: 048
     Dates: start: 20231020
  15. ATOVAQUONE [Concomitant]
     Active Substance: ATOVAQUONE
     Indication: Opportunistic infection prophylaxis
     Dosage: 1500 MG, QD
     Route: 048
     Dates: start: 20240104
  16. KARDEGIC [Concomitant]
     Active Substance: ASPIRIN DL-LYSINE
     Indication: Heart transplant
     Dosage: 75 MG, QD, (POWDER FOR ORAL SOLUTION IN SACHET-DOSE)
     Route: 048
     Dates: start: 20240209

REACTIONS (1)
  - Dermo-hypodermitis [Recovering/Resolving]

NARRATIVE: CASE EVENT DATE: 20241109
